FAERS Safety Report 13101981 (Version 1)
Quarter: 2017Q1

REPORT INFORMATION
  Report Type: Report from Study
  Country: US (occurrence: US)
  Receive Date: 20170110
  Receipt Date: 20170110
  Transmission Date: 20170428
  Serious: Yes (Other)
  Sender: FDA-Public Use
  Company Number: US-JNJFOC-20170106846

PATIENT
  Sex: Male

DRUGS (10)
  1. LORAZEPAM. [Concomitant]
     Active Substance: LORAZEPAM
  2. ASPIRIN. [Concomitant]
     Active Substance: ASPIRIN
  3. LEUKERAN [Concomitant]
     Active Substance: CHLORAMBUCIL
  4. NIACIN. [Concomitant]
     Active Substance: NIACIN
  5. IMBRUVICA [Suspect]
     Active Substance: IBRUTINIB
     Indication: CHRONIC LYMPHOCYTIC LEUKAEMIA
     Route: 048
     Dates: start: 20161116
  6. ALLOPURINOL. [Concomitant]
     Active Substance: ALLOPURINOL
  7. OXYCODONE [Concomitant]
     Active Substance: OXYCODONE
  8. XARELTO [Concomitant]
     Active Substance: RIVAROXABAN
     Indication: THROMBOSIS
  9. FISH OIL [Concomitant]
     Active Substance: FISH OIL
  10. SAW PALMETTO [Concomitant]
     Active Substance: SAW PALMETTO

REACTIONS (3)
  - Pain in extremity [Recovered/Resolved]
  - Oedema peripheral [Unknown]
  - Thrombosis [Recovered/Resolved]
